FAERS Safety Report 7912223-5 (Version None)
Quarter: 2011Q4

REPORT INFORMATION
  Report Type: 
  Country: None (occurrence: None)
  Receive Date: 20111114
  Receipt Date: 20111104
  Transmission Date: 20120403
  Serious: Yes (Hospitalization)
  Sender: FDA-Public Use
  Company Number: NL-MEDIMMUNE-MEDI-0013865

PATIENT
  Sex: Male
  Weight: 5.72 kg

DRUGS (3)
  1. AMOXICILLIN [Concomitant]
  2. SYNAGIS [Suspect]
     Route: 030
     Dates: start: 20111103, end: 20111103
  3. SYNAGIS [Suspect]
     Indication: PREMATURE BABY
     Route: 030
     Dates: start: 20111006, end: 20111006

REACTIONS (1)
  - EAR PAIN [None]
